FAERS Safety Report 17316579 (Version 2)
Quarter: 2020Q1

REPORT INFORMATION
  Report Type: Report from Study
  Country: None (occurrence: DE)
  Receive Date: 20200124
  Receipt Date: 20200206
  Transmission Date: 20200409
  Serious: Yes (Other)
  Sender: FDA-Public Use
  Company Number: DE-ABBVIE-20K-062-3247823-00

PATIENT
  Age: 63 Year
  Sex: Female
  Weight: 139 kg

DRUGS (5)
  1. CARVEDILO [Concomitant]
     Active Substance: CARVEDILOL
     Indication: PRODUCT USED FOR UNKNOWN INDICATION
     Route: 065
     Dates: start: 20191201
  2. MAVIRET [Suspect]
     Active Substance: GLECAPREVIR\PIBRENTASVIR
     Indication: CHRONIC HEPATITIS C
     Route: 048
     Dates: start: 20190713, end: 20191004
  3. AMLODIPIN [Concomitant]
     Active Substance: AMLODIPINE BESYLATE
     Indication: CARDIOVASCULAR DISORDER
     Route: 065
     Dates: start: 20190101
  4. LOSARTAN COMP CT [Concomitant]
     Active Substance: HYDROCHLOROTHIAZIDE\LOSARTAN POTASSIUM
     Indication: CARDIOVASCULAR DISORDER
     Dosage: 50/12.5MG
     Route: 065
     Dates: start: 20190101
  5. EFEROX [Concomitant]
     Active Substance: LEVOTHYROXINE SODIUM
     Indication: PRODUCT USED FOR UNKNOWN INDICATION
     Route: 065
     Dates: start: 20160101

REACTIONS (1)
  - Renal failure [Unknown]

NARRATIVE: CASE EVENT DATE: 201911
